FAERS Safety Report 7684728-6 (Version None)
Quarter: 2011Q3

REPORT INFORMATION
  Report Type: 
  Country: None (occurrence: None)
  Receive Date: 20110810
  Receipt Date: 20110801
  Transmission Date: 20111222
  Serious: Yes (Hospitalization)
  Sender: FDA-Public Use
  Company Number: MPS1-1000541

PATIENT
  Age: 26 Year
  Sex: Male

DRUGS (1)
  1. ALDURAZYME [Suspect]
     Indication: MUCOPOLYSACCHARIDOSIS I
     Dosage: 26.1 MG, QW, INTRAVENOUS
     Route: 042
     Dates: start: 20031204

REACTIONS (1)
  - PNEUMONIA [None]
